FAERS Safety Report 7507709-1 (Version None)
Quarter: 2011Q2

REPORT INFORMATION
  Report Type: 
  Country: None (occurrence: None)
  Receive Date: 20110527
  Receipt Date: 20110520
  Transmission Date: 20111010
  Serious: No
  Sender: FDA-Public Use
  Company Number: US-BIOGENIDEC-2010BI030419

PATIENT
  Sex: Male

DRUGS (1)
  1. TYSABRI [Suspect]
     Indication: MULTIPLE SCLEROSIS
     Route: 042
     Dates: start: 20090605

REACTIONS (4)
  - GAIT DISTURBANCE [None]
  - WEIGHT DECREASED [None]
  - DRUG INEFFECTIVE [None]
  - PERONEAL NERVE PALSY [None]
